FAERS Safety Report 18230456 (Version 1)
Quarter: 2020Q3

REPORT INFORMATION
  Report Type: Spontaneous
  Country: US (occurrence: US)
  Receive Date: 20200903
  Receipt Date: 20200903
  Transmission Date: 20201103
  Serious: No
  Sender: FDA-Public Use
  Company Number: US-009507513-2008USA014011

PATIENT
  Sex: Male

DRUGS (1)
  1. BRIDION [Suspect]
     Active Substance: SUGAMMADEX
     Indication: NEUROMUSCULAR BLOCKADE REVERSAL

REACTIONS (4)
  - Wrong technique in product usage process [Unknown]
  - Speech disorder [Unknown]
  - Asthenia [Unknown]
  - Logorrhoea [Unknown]

NARRATIVE: CASE EVENT DATE: 2020
